FAERS Safety Report 7814752-1 (Version None)
Quarter: 2011Q4

REPORT INFORMATION
  Report Type: 
  Country: None (occurrence: None)
  Receive Date: 20111014
  Receipt Date: 20111003
  Transmission Date: 20120403
  Serious: Yes (Other)
  Sender: FDA-Public Use
  Company Number: PT-JNJFOC-20110909049

PATIENT
  Sex: Male

DRUGS (2)
  1. TOPAMAX [Suspect]
     Route: 048
     Dates: end: 20110930
  2. TOPAMAX [Suspect]
     Indication: EPILEPSY
     Route: 048
     Dates: end: 20110930

REACTIONS (7)
  - EPILEPSY [None]
  - HEADACHE [None]
  - COMA [None]
  - CONFUSIONAL STATE [None]
  - PRODUCT EXPIRATION DATE ISSUE [None]
  - EXPIRED DRUG ADMINISTERED [None]
  - OVERDOSE [None]
